FAERS Safety Report 5843426-1 (Version None)
Quarter: 2008Q3

REPORT INFORMATION
  Report Type: 
  Country: None (occurrence: None)
  Receive Date: 20080813
  Receipt Date: 20080808
  Transmission Date: 20090109
  Serious: Yes (Other)
  Sender: FDA-Public Use
  Company Number: B0532872A

PATIENT
  Age: 36 Year
  Sex: Male

DRUGS (1)
  1. AUGMENTIN [Suspect]
     Indication: INFECTION PROPHYLAXIS
     Dosage: 1000G PER DAY
     Route: 048
     Dates: start: 20080122, end: 20080122

REACTIONS (6)
  - ABDOMINAL PAIN [None]
  - DYSPNOEA [None]
  - ERYTHEMA [None]
  - FLUSHING [None]
  - HYPOTENSION [None]
  - PRURITUS [None]
